FAERS Safety Report 7073269-5 (Version None)
Quarter: 2010Q4

REPORT INFORMATION
  Report Type: 
  Country: None (occurrence: None)
  Receive Date: 20101029
  Receipt Date: 20100713
  Transmission Date: 20110411
  Serious: No
  Sender: FDA-Public Use
  Company Number: A0860423A

PATIENT
  Age: 86 Year
  Sex: Female

DRUGS (10)
  1. ADVAIR DISKUS 100/50 [Suspect]
     Indication: PRODUCT USED FOR UNKNOWN INDICATION
     Dosage: 1PUFF TWICE PER DAY
     Route: 055
     Dates: start: 20100101
  2. PROTONIX [Concomitant]
  3. PLAVIX [Concomitant]
  4. DIAVAN [Concomitant]
  5. ATENOLOL [Concomitant]
  6. CELEXA [Concomitant]
  7. TRAZODONE [Concomitant]
  8. LANOXIN [Concomitant]
  9. LASIX [Concomitant]
  10. ACETAMINOPHEN [Concomitant]

REACTIONS (3)
  - COUGH [None]
  - ORAL PAIN [None]
  - PRODUCT QUALITY ISSUE [None]
